FAERS Safety Report 6245065-X (Version None)
Quarter: 2009Q2

REPORT INFORMATION
  Report Type: 
  Country: None (occurrence: None)
  Receive Date: 20090625
  Receipt Date: 20090615
  Transmission Date: 20091009
  Serious: Yes (Hospitalization)
  Sender: FDA-Public Use
  Company Number: FR-ELI_LILLY_AND_COMPANY-FR200906003315

PATIENT
  Age: 72 Year
  Sex: Female

DRUGS (2)
  1. PROZAC [Suspect]
     Dosage: 1 D/F, DAILY (1/D)
     Route: 048
     Dates: start: 20090425, end: 20090501
  2. TEGRETOL [Concomitant]
     Route: 048
     Dates: start: 20090425, end: 20090501

REACTIONS (9)
  - CHEILITIS [None]
  - DERMATITIS EXFOLIATIVE [None]
  - EOSINOPHILIA [None]
  - FACE OEDEMA [None]
  - HYPERTHERMIA [None]
  - OEDEMA PERIPHERAL [None]
  - RASH ERYTHEMATOUS [None]
  - RASH MACULO-PAPULAR [None]
  - SCAB [None]
